FAERS Safety Report 11762440 (Version 1)
Quarter: 2015Q4

REPORT INFORMATION
  Report Type: Spontaneous
  Country: US (occurrence: US)
  Receive Date: 20151120
  Receipt Date: 20151120
  Transmission Date: 20160304
  Serious: No
  Sender: FDA-Public Use
  Company Number: US-ELI_LILLY_AND_COMPANY-US201301009121

PATIENT
  Sex: Female

DRUGS (1)
  1. FORTEO [Suspect]
     Active Substance: TERIPARATIDE
     Indication: OSTEOPOROSIS
     Dosage: 20 UG, QD
     Dates: start: 20120116

REACTIONS (9)
  - Blood pressure decreased [Not Recovered/Not Resolved]
  - Headache [Unknown]
  - Pain [Not Recovered/Not Resolved]
  - Fibromyalgia [Unknown]
  - Atrial fibrillation [Not Recovered/Not Resolved]
  - Frequent bowel movements [Unknown]
  - Heart rate increased [Not Recovered/Not Resolved]
  - Pain in jaw [Unknown]
  - Decreased appetite [Unknown]
